FAERS Safety Report 6527941-3 (Version None)
Quarter: 2010Q1

REPORT INFORMATION
  Report Type: 
  Country: None (occurrence: None)
  Receive Date: 20100106
  Receipt Date: 20091230
  Transmission Date: 20100710
  Serious: Yes (Hospitalization)
  Sender: FDA-Public Use
  Company Number: GB-BAYER-201010195GPV

PATIENT
  Age: 48 Year
  Sex: Male

DRUGS (4)
  1. ACETYLSALICYLIC ACID [Suspect]
     Indication: HYPERTENSION
     Route: 065
  2. ATENOLOL [Suspect]
     Indication: HYPERTENSION
     Route: 065
     Dates: end: 20000101
  3. ALLOPURINOL [Suspect]
     Indication: HYPERTENSION
     Route: 065
  4. IRBESATAN [Suspect]
     Indication: HYPERTENSION
     Route: 065
     Dates: end: 20000101

REACTIONS (2)
  - DIARRHOEA [None]
  - RENAL FAILURE ACUTE [None]
